FAERS Safety Report 7029374-2 (Version None)
Quarter: 2010Q4

REPORT INFORMATION
  Report Type: 
  Country: None (occurrence: None)
  Receive Date: 20101005
  Receipt Date: 20100927
  Transmission Date: 20110411
  Serious: Yes (Death)
  Sender: FDA-Public Use
  Company Number: PHHY2010US54690

PATIENT
  Sex: Female

DRUGS (1)
  1. ZOMETA [Suspect]
     Dosage: EVERY 4 WEEKS
     Route: 042
     Dates: start: 20100517, end: 20100719

REACTIONS (2)
  - BREAST CANCER METASTATIC [None]
  - MYELODYSPLASTIC SYNDROME [None]
